FAERS Safety Report 16107449 (Version 1)
Quarter: 2019Q1

REPORT INFORMATION
  Report Type: Report from Study
  Country: US (occurrence: BR)
  Receive Date: 20190322
  Receipt Date: 20190322
  Transmission Date: 20190418
  Serious: Yes (Other)
  Sender: FDA-Public Use
  Company Number: US-SUNOVION-2019SUN001168

PATIENT
  Age: 86 Year
  Sex: Male
  Weight: 86 kg

DRUGS (1)
  1. INDACATEROL AND GLYCOPYRROLATE [Suspect]
     Active Substance: GLYCOPYRROLATE\INDACATEROL MALEATE
     Indication: PRODUCT USED FOR UNKNOWN INDICATION
     Dosage: UNKNOWN
     Route: 065

REACTIONS (8)
  - Emphysema [Unknown]
  - Face injury [Recovering/Resolving]
  - Skin exfoliation [Recovering/Resolving]
  - Loss of consciousness [Recovered/Resolved]
  - Blood pressure increased [Recovering/Resolving]
  - Fear [Recovering/Resolving]
  - Fall [Recovering/Resolving]
  - Memory impairment [Recovered/Resolved]

NARRATIVE: CASE EVENT DATE: 20190311
